FAERS Safety Report 24066035 (Version 1)
Quarter: 2024Q3

REPORT INFORMATION
  Report Type: Spontaneous
  Country: US (occurrence: None)
  Receive Date: 20240708
  Receipt Date: 20240708
  Transmission Date: 20241017
  Serious: Yes (Death)
  Sender: Public
  Company Number: None

PATIENT
  Age: 86 Year
  Sex: Female
  Weight: 64.89 kg

DRUGS (1)
  1. FERAHEME [Suspect]
     Active Substance: FERUMOXYTOL NON-STOICHIOMETRIC MAGNETITE
     Indication: Iron deficiency anaemia
     Dosage: OTHER FREQUENCY : Q WEEK X 2 DOSES;?
     Route: 041
     Dates: start: 20240626, end: 20240705

REACTIONS (3)
  - Unresponsive to stimuli [None]
  - Infusion related reaction [None]
  - Feeling abnormal [None]

NARRATIVE: CASE EVENT DATE: 20240705
